FAERS Safety Report 10042961 (Version 2)
Quarter: 2014Q4

REPORT INFORMATION
  Report Type: Report from Study
  Country: US (occurrence: US)
  Receive Date: 20140328
  Receipt Date: 20141119
  Transmission Date: 20150528
  Serious: Yes (Hospitalization)
  Sender: FDA-Public Use
  Company Number: US-ROCHE-1371005

PATIENT
  Age: 55 Year
  Sex: Male

DRUGS (1)
  1. XOLAIR [Suspect]
     Active Substance: OMALIZUMAB
     Indication: PRODUCT USED FOR UNKNOWN INDICATION
     Dosage: INHALED STEROID FIXED DOSE COMBINATION LARA+INHALED STEROID
     Route: 058

REACTIONS (12)
  - Dyspnoea [Unknown]
  - Dizziness [Unknown]
  - Mood swings [Unknown]
  - Asthma [Unknown]
  - Restlessness [Unknown]
  - Chest pain [Unknown]
  - Wheezing [Unknown]
  - Middle insomnia [Unknown]
  - Cough [Unknown]
  - Claustrophobia [Unknown]
  - Headache [Unknown]
  - Agitation [Unknown]
